FAERS Safety Report 9508525 (Version 1)
Quarter: 2013Q3

REPORT INFORMATION
  Report Type: Spontaneous
  Country: CH (occurrence: CH)
  Receive Date: 20130909
  Receipt Date: 20130909
  Transmission Date: 20140515
  Serious: Yes (Disabling)
  Sender: FDA-Public Use
  Company Number: CH-PFIZER INC-2013256611

PATIENT
  Age: 56 Year
  Sex: Female
  Weight: 62 kg

DRUGS (4)
  1. RELPAX [Suspect]
     Indication: MIGRAINE
     Dosage: 40 MG, AT AN AVERAGE OF 40 MG EVERY 4 TO 5 DAYS
     Route: 048
     Dates: start: 20080811, end: 20110711
  2. BRUFEN [Suspect]
     Indication: MIGRAINE
     Dosage: DOSE UNSPECIFIED, 1X/DAY
     Route: 048
     Dates: start: 2005
  3. INDERAL [Concomitant]
     Dosage: 40 MG, UNK
  4. SIMCORA [Concomitant]
     Dosage: 20 MG, UNK

REACTIONS (2)
  - Hypoacusis [Recovered/Resolved with Sequelae]
  - Sudden hearing loss [Recovered/Resolved with Sequelae]
